FAERS Safety Report 6203891-7 (Version None)
Quarter: 2009Q2

REPORT INFORMATION
  Report Type: 
  Country: None (occurrence: None)
  Receive Date: 20090527
  Receipt Date: 20090519
  Transmission Date: 20091009
  Serious: Yes (Death)
  Sender: FDA-Public Use
  Company Number: A0664051A

PATIENT
  Sex: Female
  Weight: 54 kg

DRUGS (7)
  1. SERETIDE [Suspect]
     Indication: ASTHMA
     Route: 055
     Dates: start: 20010101, end: 20090508
  2. FENOTEROL [Concomitant]
     Dosage: 6DROP AS REQUIRED
     Dates: start: 20060801
  3. ATROVENT [Concomitant]
     Dosage: 25DROP AS REQUIRED
     Dates: start: 20060801
  4. NYSTATIN [Concomitant]
     Dates: start: 20050401
  5. LANSOPRAZOLE [Concomitant]
     Dosage: 30MG PER DAY
     Dates: start: 20090220
  6. PURAN T4 [Concomitant]
     Dosage: 1TAB PER DAY
     Route: 048
     Dates: start: 20051001
  7. FLUCONAZOLE [Concomitant]

REACTIONS (2)
  - DEATH [None]
  - DRUG INEFFECTIVE [None]
